FAERS Safety Report 6027560-1 (Version None)
Quarter: 2009Q1

REPORT INFORMATION
  Report Type: 
  Country: None (occurrence: None)
  Receive Date: 20090105
  Receipt Date: 20081223
  Transmission Date: 20090719
  Serious: Yes (Other)
  Sender: FDA-Public Use
  Company Number: US-ELI_LILLY_AND_COMPANY-US200812005603

PATIENT
  Sex: Female

DRUGS (3)
  1. EVISTA [Suspect]
     Dosage: UNK, UNKNOWN
     Route: 048
  2. FOSAMAX [Concomitant]
     Dosage: UNK, UNKNOWN
     Route: 048
  3. ACTONEL [Concomitant]
     Dosage: UNK, UNKNOWN
     Route: 048

REACTIONS (2)
  - RENAL IMPAIRMENT [None]
  - URINE OUTPUT DECREASED [None]
